FAERS Safety Report 4515413-7 (Version None)
Quarter: 2004Q4

REPORT INFORMATION
  Report Type: 
  Country: None (occurrence: None)
  Receive Date: 20041029
  Receipt Date: 20040826
  Transmission Date: 20050328
  Serious: No
  Sender: FDA-Public Use
  Company Number: 200416599US

PATIENT
  Sex: Male

DRUGS (1)
  1. KETEK [Suspect]
     Dates: start: 20040817, end: 20040819

REACTIONS (3)
  - HYPERSENSITIVITY [None]
  - OEDEMA [None]
  - RASH [None]
